FAERS Safety Report 7285970-9 (Version None)
Quarter: 2011Q1

REPORT INFORMATION
  Report Type: 
  Country: None (occurrence: None)
  Receive Date: 20110210
  Receipt Date: 20110204
  Transmission Date: 20110831
  Serious: Yes (Hospitalization)
  Sender: FDA-Public Use
  Company Number: FR-B.I. PHARMACEUTICALS,INC./RIDGEFIELD-2011-FF-00120FF

PATIENT
  Sex: Female

DRUGS (8)
  1. PRADAXA [Suspect]
     Dosage: 220 MG
     Route: 048
     Dates: start: 20100924
  2. TRIATEC [Concomitant]
     Indication: HYPERTENSION
  3. JANUVIA [Concomitant]
     Indication: TYPE 2 DIABETES MELLITUS
  4. LEVOTHYROX [Concomitant]
  5. PRADAXA [Suspect]
     Indication: KNEE ARTHROPLASTY
     Dosage: 110 MG
     Route: 048
     Dates: start: 20100923, end: 20100923
  6. BISOPROLOL [Concomitant]
     Indication: HYPERTENSION
  7. GLYBURIDE [Concomitant]
     Indication: TYPE 2 DIABETES MELLITUS
  8. MEDIATENSYL [Concomitant]
     Indication: HYPERTENSION

REACTIONS (3)
  - COLITIS ULCERATIVE [None]
  - GASTROINTESTINAL HAEMORRHAGE [None]
  - RENAL FAILURE [None]
